FAERS Safety Report 20176191 (Version 1)
Quarter: 2021Q4

REPORT INFORMATION
  Report Type: Report from Study
  Country: US (occurrence: US)
  Receive Date: 20211213
  Receipt Date: 20211213
  Transmission Date: 20220303
  Serious: Yes (Other)
  Sender: FDA-Public Use
  Company Number: US-IGSA-BIG0016885

PATIENT
  Age: 42 Year
  Sex: Female

DRUGS (2)
  1. GAMUNEX-C [Suspect]
     Active Substance: HUMAN IMMUNOGLOBULIN G
     Indication: Chronic inflammatory demyelinating polyradiculoneuropathy
     Dosage: 30 GRAM, Q.3WK.
     Route: 042
     Dates: start: 202110, end: 202110
  2. GAMUNEX-C [Suspect]
     Active Substance: HUMAN IMMUNOGLOBULIN G
     Dosage: 5 GRAM, Q.3WK.
     Route: 042
     Dates: start: 202110, end: 202110

REACTIONS (5)
  - Hypersensitivity [Unknown]
  - Pruritus [Unknown]
  - Blister [Unknown]
  - Urticaria [Unknown]
  - Rash erythematous [Unknown]

NARRATIVE: CASE EVENT DATE: 20211001
